FAERS Safety Report 9383864 (Version 4)
Quarter: 2016Q1

REPORT INFORMATION
  Report Type: Spontaneous
  Country: US (occurrence: US)
  Receive Date: 20130704
  Receipt Date: 20160201
  Transmission Date: 20160526
  Serious: Yes (Other)
  Sender: FDA-Public Use
  Company Number: US-009507513-1307USA000709

PATIENT
  Age: 24 Year
  Sex: Female
  Weight: 104.76 kg

DRUGS (1)
  1. IMPLANON [Suspect]
     Active Substance: ETONOGESTREL
     Indication: CONTRACEPTION
     Dosage: 1 ROD EVERY 3 YEARS
     Route: 059
     Dates: start: 200804

REACTIONS (14)
  - Incorrect drug administration duration [Unknown]
  - Vaginal haemorrhage [Not Recovered/Not Resolved]
  - Suicidal ideation [Unknown]
  - Soft tissue injury [Unknown]
  - Decreased appetite [Unknown]
  - Incision site complication [Unknown]
  - Incision site erythema [Unknown]
  - Device difficult to use [Not Recovered/Not Resolved]
  - Depression [Unknown]
  - Nausea [Unknown]
  - Incision site swelling [Unknown]
  - Basedow^s disease [Unknown]
  - Surgery [Not Recovered/Not Resolved]
  - Complication associated with device [Not Recovered/Not Resolved]

NARRATIVE: CASE EVENT DATE: 201104
